FAERS Safety Report 19608766 (Version 1)
Quarter: 2021Q3

REPORT INFORMATION
  Report Type: Spontaneous
  Country: US (occurrence: US)
  Receive Date: 20210724
  Receipt Date: 20210724
  Transmission Date: 20211014
  Serious: Yes (Other)
  Sender: FDA-Public Use
  Company Number: None

PATIENT
  Age: 25 Year
  Sex: Male
  Weight: 82.8 kg

DRUGS (5)
  1. GARLIC SUPPLEMENT [Concomitant]
  2. VITAMIN D [Concomitant]
     Active Substance: VITAMIN D NOS
  3. TESTOSTERONE CYPIONATE INJECTION, USP 200MG/ML 1ML SINGLE DOSE VIAL [Suspect]
     Active Substance: TESTOSTERONE CYPIONATE
     Indication: HYPOGONADISM
     Dosage: ?          QUANTITY:1 INJECTION(S);OTHER FREQUENCY:EVERY OTHER DAY;?
     Route: 030
     Dates: start: 20210723, end: 20210724
  4. FISH OIL [Concomitant]
     Active Substance: FISH OIL
  5. MAGNESIUM CITRATE. [Concomitant]
     Active Substance: MAGNESIUM CITRATE

REACTIONS (4)
  - Depression [None]
  - Anxiety [None]
  - Product substitution issue [None]
  - Nightmare [None]

NARRATIVE: CASE EVENT DATE: 20210723
